FAERS Safety Report 4597313-X (Version None)
Quarter: 2005Q1

REPORT INFORMATION
  Report Type: 
  Country: None (occurrence: None)
  Receive Date: 20050303
  Receipt Date: 20040408
  Transmission Date: 20050727
  Serious: No
  Sender: FDA-Public Use
  Company Number: US-GLAXOSMITHKLINE-A0506394A

PATIENT
  Sex: Female

DRUGS (2)
  1. DEXEDRINE [Suspect]
     Route: 048
     Dates: start: 19980101, end: 20040301
  2. PROZAC [Concomitant]

REACTIONS (1)
  - DEPRESSION [None]
